FAERS Safety Report 8516053-5 (Version None)
Quarter: 2012Q3

REPORT INFORMATION
  Report Type: 
  Country: None (occurrence: None)
  Receive Date: 20120717
  Receipt Date: 20120514
  Transmission Date: 20120928
  Serious: No
  Sender: FDA-Public Use
  Company Number: US-NOVEN-12US004650

PATIENT
  Sex: Male

DRUGS (3)
  1. HYDROCODONE [Concomitant]
     Indication: BREAKTHROUGH PAIN
     Route: 048
  2. FENTANYL [Suspect]
     Dosage: 25 UG/HR, Q 72 HOURS
     Route: 062
  3. FENTANYL [Suspect]
     Indication: PAIN
     Dosage: 100 UG/HR, Q 72 HOURS
     Route: 062

REACTIONS (1)
  - INADEQUATE ANALGESIA [None]
